FAERS Safety Report 17553551 (Version 1)
Quarter: 2020Q1

REPORT INFORMATION
  Report Type: Spontaneous
  Country: CN (occurrence: CN)
  Receive Date: 20200317
  Receipt Date: 20200317
  Transmission Date: 20200409
  Serious: Yes (Other)
  Sender: FDA-Public Use
  Company Number: CN-VALIDUS PHARMACEUTICALS LLC-CN-2020VAL000202

PATIENT

DRUGS (7)
  1. RECOMBINANT HUMAN ERYTHROPOIETIN [Suspect]
     Active Substance: ERYTHROPOIETIN
     Indication: PRODUCT USED FOR UNKNOWN INDICATION
     Dosage: 10000 IU, UNK 2 IN 1 WK
     Route: 058
  2. CALCITRIOL. [Suspect]
     Active Substance: CALCITRIOL
     Indication: PRODUCT USED FOR UNKNOWN INDICATION
     Dosage: 0.25 ?G, UNK
     Route: 065
  3. IRON SUCROSE [Suspect]
     Active Substance: IRON SUCROSE
     Indication: PRODUCT USED FOR UNKNOWN INDICATION
     Dosage: 100 MG, 2 IN 1 WK
     Route: 042
  4. FOLIC ACID. [Suspect]
     Active Substance: FOLIC ACID
     Indication: PRODUCT USED FOR UNKNOWN INDICATION
     Dosage: 10 MG, UNK
     Route: 065
  5. HEPARIN [Suspect]
     Active Substance: HEPARIN SODIUM
     Indication: DIALYSIS
     Dosage: BOLUS DOSE OF 1000 IU FOLLOWED BY 250 IU EVERY HOUR
     Route: 065
  6. CALCIUM CARBONATE. [Suspect]
     Active Substance: CALCIUM CARBONATE
     Indication: PRODUCT USED FOR UNKNOWN INDICATION
     Dosage: 0.6 G, UNK
     Route: 065
  7. ALPHA-METHYLDOPA [Suspect]
     Active Substance: METHYLDOPA
     Indication: BLOOD PRESSURE MEASUREMENT
     Dosage: UNK
     Route: 065

REACTIONS (3)
  - Exposure during pregnancy [Recovered/Resolved]
  - Polyhydramnios [Unknown]
  - Azotaemia [Unknown]
